FAERS Safety Report 9083621 (Version 1)
Quarter: 2013Q1

REPORT INFORMATION
  Report Type: Report from Study
  Country: MX (occurrence: MX)
  Receive Date: 20130218
  Receipt Date: 20130218
  Transmission Date: 20140127
  Serious: Yes (Death, Other)
  Sender: FDA-Public Use
  Company Number: PHHY2012MX038337

PATIENT
  Age: 69 Year
  Sex: Male

DRUGS (8)
  1. ONBREZ [Suspect]
     Indication: CHRONIC OBSTRUCTIVE PULMONARY DISEASE
     Dosage: 150 UG, DAILY
     Dates: start: 201202
  2. LOSARTAN [Concomitant]
     Indication: HYPERTENSION
     Dosage: 1 DF, UNK
     Dates: start: 201202
  3. SPIRONOLACTONE [Concomitant]
     Indication: HYPERTENSION
     Dosage: 1 DF, UNK
     Dates: start: 201202
  4. DIGOXINE [Concomitant]
     Indication: HYPERTENSION
     Dosage: 1 DF, UNK
     Dates: start: 201203
  5. ANGIOTROFIN (DILTIAZEM HYDROCHLORIDE) [Concomitant]
     Indication: HYPERTENSION
     Dosage: 1 DF, UNK
     Dates: start: 201203
  6. GLIBENCLAMIDE [Concomitant]
     Indication: DIABETES MELLITUS
     Dosage: 2 DF, UNK
  7. COMBIVENT [Concomitant]
     Dosage: 1 DF, 1 APPLICATION DAILY
     Dates: start: 201202
  8. SPIRIVA [Concomitant]
     Dates: start: 201202

REACTIONS (3)
  - Chronic obstructive pulmonary disease [Fatal]
  - Abasia [Not Recovered/Not Resolved]
  - Agitation [Unknown]
